FAERS Safety Report 8765409 (Version 2)
Quarter: 2012Q4

REPORT INFORMATION
  Report Type: 
  Country: US (occurrence: US)
  Receive Date: 20120831
  Receipt Date: 20121022
  Transmission Date: 20130627
  Serious: Yes (Other)
  Sender: FDA-Public Use
  Company Number: US-JNJFOC-20100802913

PATIENT
  Age: 57 Year
  Sex: Female

DRUGS (1)
  1. LEVAQUIN [Suspect]
     Indication: ACUTE SINUSITIS
     Route: 048

REACTIONS (5)
  - Rotator cuff syndrome [Unknown]
  - Tendon rupture [Unknown]
  - Rotator cuff syndrome [Unknown]
  - Tendon disorder [Unknown]
  - Tenosynovitis [Unknown]
